FAERS Safety Report 5798117-2 (Version None)
Quarter: 2008Q3

REPORT INFORMATION
  Report Type: 
  Country: None (occurrence: None)
  Receive Date: 20080702
  Receipt Date: 20070417
  Transmission Date: 20090109
  Serious: No
  Sender: FDA-Public Use
  Company Number: US-ASTRAZENECA-2007UW07487

PATIENT
  Age: 75 Year
  Sex: Male

DRUGS (4)
  1. ZOLADEX [Suspect]
     Indication: PROSTATE CANCER
     Dosage: SAFE SYSTEM SYRINGE
     Route: 058
  2. ACYCLOVIR SODIUM [Concomitant]
  3. ALEVE [Concomitant]
  4. MULTI-VITAMIN [Concomitant]

REACTIONS (1)
  - INJECTION SITE REACTION [None]
